FAERS Safety Report 5708548-4 (Version None)
Quarter: 2008Q2

REPORT INFORMATION
  Report Type: 
  Country: None (occurrence: None)
  Receive Date: 20080417
  Receipt Date: 20080408
  Transmission Date: 20081010
  Serious: Yes (Hospitalization)
  Sender: FDA-Public Use
  Company Number: PHRM2008FR01229

PATIENT
  Age: 70 Year
  Sex: Male

DRUGS (1)
  1. NISIS [Suspect]
     Indication: HYPERTENSION
     Dosage: 80 MG, QD
     Route: 048
     Dates: start: 20080319

REACTIONS (3)
  - COMA [None]
  - HYPERKALAEMIA [None]
  - RENAL FAILURE ACUTE [None]
